FAERS Safety Report 9837230 (Version 2)
Quarter: 2014Q2

REPORT INFORMATION
  Report Type: Spontaneous
  Country: US (occurrence: None)
  Receive Date: 20131205
  Receipt Date: 20140416
  Transmission Date: 20141212
  Serious: Yes (Other)
  Sender: FDA-Public Use
  Company Number: 163-POMAL-13111534

PATIENT
  Age: 64 Year
  Sex: Female

DRUGS (10)
  1. POMALYST (POMALIDOMIDE) (2 MILLIGRAM, CAPSULES) [Suspect]
     Indication: PLASMA CELL MYELOMA
     Dosage: 2 MG, 21 IN 28 D
     Route: 048
     Dates: start: 201309
  2. DEXAMETHASONE(DEXAMETHASONE) [Concomitant]
  3. WARFARIN SODIUM(WARFARIN SODIUM) [Concomitant]
  4. METOPROLOL TARTRATE(METOPROLOL TARTRATE) [Concomitant]
  5. LEVOFLOXACIN(LEVOFLOXACIN) [Concomitant]
  6. AMOX TR-POTASSIUM CLAV [Concomitant]
  7. VERAMYST(FLUTICASONE FUROATE) [Concomitant]
  8. CARVEDILOL(CARVEDILOL) [Concomitant]
  9. LISINOPRIL(LISINOPRIL) [Concomitant]
  10. DIGOXIN (DIGOXIN) [Concomitant]

REACTIONS (4)
  - Atrial fibrillation [None]
  - Blood pressure abnormal [None]
  - Blood pressure increased [None]
  - Atrial fibrillation [None]
